FAERS Safety Report 10088024 (Version 1)
Quarter: 2014Q2

REPORT INFORMATION
  Report Type: Spontaneous
  Country: IN (occurrence: IN)
  Receive Date: 20140420
  Receipt Date: 20140420
  Transmission Date: 20141212
  Serious: Yes (Death, Life-Threatening, Other)
  Sender: FDA-Public Use
  Company Number: IN-009507513-1404IND009569

PATIENT
  Age: 72 Year
  Sex: Male

DRUGS (2)
  1. JANUMET [Suspect]
     Indication: DIABETES MELLITUS
     Dosage: STRENGTH 50/500, TWO TIMES
     Route: 048
  2. INSULIN [Concomitant]
     Dosage: UNK

REACTIONS (1)
  - Cardiac arrest [Fatal]
